FAERS Safety Report 7129119-1 (Version None)
Quarter: 2010Q4

REPORT INFORMATION
  Report Type: 
  Country: None (occurrence: None)
  Receive Date: 20101130
  Receipt Date: 20101118
  Transmission Date: 20110411
  Serious: Yes (Other)
  Sender: FDA-Public Use
  Company Number: US-ROCHE-722572

PATIENT
  Sex: Male
  Weight: 81.6 kg

DRUGS (7)
  1. ACCUTANE [Suspect]
     Indication: ACNE
     Route: 048
     Dates: start: 19880801, end: 19890601
  2. ACCUTANE [Suspect]
     Route: 048
     Dates: start: 19900101
  3. HYDROCORTISONE [Concomitant]
     Dates: start: 20000101
  4. LIPITOR [Concomitant]
     Route: 048
  5. ATENOLOL [Concomitant]
     Dosage: DOSE AMOUNT : 25 MG, 50 MG
  6. ASACOL [Concomitant]
  7. AMITRIPTYLINE HCL [Concomitant]

REACTIONS (10)
  - ABDOMINAL PAIN [None]
  - ARTHRALGIA [None]
  - ARTHRITIS [None]
  - COLITIS ULCERATIVE [None]
  - INFLAMMATORY BOWEL DISEASE [None]
  - LARGE INTESTINAL ULCER [None]
  - NAUSEA [None]
  - OSTEOPENIA [None]
  - OSTEOPOROSIS [None]
  - RECTAL HAEMORRHAGE [None]
